FAERS Safety Report 22351801 (Version 1)
Quarter: 2023Q2

REPORT INFORMATION
  Report Type: Spontaneous
  Country: US (occurrence: US)
  Receive Date: 20230522
  Receipt Date: 20230522
  Transmission Date: 20230721
  Serious: No
  Sender: FDA-Public Use
  Company Number: US-FreseniusKabi-FK202306469

PATIENT
  Age: 40 Year
  Sex: Female

DRUGS (2)
  1. PROGESTERONE INJECTION USP [Suspect]
     Active Substance: PROGESTERONE
     Indication: In vitro fertilisation
     Route: 030
     Dates: start: 20230409, end: 20230415
  2. PROGESTERONE INJECTION USP [Suspect]
     Active Substance: PROGESTERONE
     Indication: Progesterone increased

REACTIONS (3)
  - Product storage error [Unknown]
  - Off label use [Unknown]
  - Failed in vitro fertilisation [Unknown]
